FAERS Safety Report 9929564 (Version 2)
Quarter: 2014Q1

REPORT INFORMATION
  Report Type: Spontaneous
  Country: DE (occurrence: DE)
  Receive Date: 20140227
  Receipt Date: 20140328
  Transmission Date: 20141002
  Serious: Yes (Hospitalization, Disabling)
  Sender: FDA-Public Use
  Company Number: DE-CELGENEUS-062-21660-14022241

PATIENT
  Age: 78 Year
  Sex: Male
  Weight: 64 kg

DRUGS (8)
  1. ABRAXANE [Suspect]
     Indication: PANCREATIC CARCINOMA
     Dosage: 220 MILLIGRAM
     Route: 041
  2. GEMZAR [Concomitant]
     Indication: METASTASES TO LIVER
     Route: 041
  3. ASS [Concomitant]
     Indication: CORONARY ARTERY DISEASE
     Dosage: 100 DOSAGE FORMS
     Route: 048
  4. DELIX [Concomitant]
     Indication: HYPERTENSION
     Dosage: 10 DOSAGE FORMS
     Route: 048
  5. INEGY [Concomitant]
     Indication: HYPERLIPIDAEMIA
     Dosage: 1 DOSAGE FORMS
     Route: 048
  6. METOPROLOL [Concomitant]
     Indication: CORONARY ARTERY DISEASE
     Dosage: 95 DOSAGE FORMS
     Route: 048
  7. HYDROCHLOROTHIAZID [Concomitant]
     Indication: HYPERTENSION
     Dosage: 12.5 DOSAGE FORMS
     Route: 048
  8. PANTOZOL [Concomitant]
     Indication: PRODUCT USED FOR UNKNOWN INDICATION
     Dosage: 40 DOSAGE FORMS
     Route: 048

REACTIONS (4)
  - Cerebral ischaemia [Not Recovered/Not Resolved]
  - Cerebellar ischaemia [Not Recovered/Not Resolved]
  - Blindness [Not Recovered/Not Resolved]
  - Visual field defect [Not Recovered/Not Resolved]
